FAERS Safety Report 5472492-0 (Version None)
Quarter: 2007Q3

REPORT INFORMATION
  Report Type: 
  Country: None (occurrence: None)
  Receive Date: 20070926
  Receipt Date: 20070919
  Transmission Date: 20080115
  Serious: Yes (Hospitalization)
  Sender: FDA-Public Use
  Company Number: GXKR2007FR07871

PATIENT
  Age: 17 Year
  Sex: Male

DRUGS (1)
  1. FLURBIPROFEN [Suspect]
     Indication: JUVENILE ARTHRITIS

REACTIONS (1)
  - AGRANULOCYTOSIS [None]
